FAERS Safety Report 7200912-X (Version None)
Quarter: 2010Q4

REPORT INFORMATION
  Report Type: 
  Country: None (occurrence: None)
  Receive Date: 20101228
  Receipt Date: 20101222
  Transmission Date: 20110411
  Serious: Yes (Hospitalization, Other)
  Sender: FDA-Public Use
  Company Number: FR-PFIZER INC-2010177189

PATIENT
  Age: 46 Year
  Sex: Male

DRUGS (18)
  1. LYRICA [Suspect]
     Dosage: 75 MG, 2X/DAY
     Route: 048
     Dates: start: 20101023
  2. FARMORUBICINE [Suspect]
     Dosage: 100 MG, 1X/DAY
     Route: 042
     Dates: start: 20100905
  3. ATARAX [Suspect]
     Dosage: 100MG/2ML SOLUTION FOR INFUSION PER DAY
     Route: 042
     Dates: start: 20101025, end: 20101026
  4. OXYCODONE HCL [Suspect]
     Indication: PAIN
     Dosage: 360 MG, DAILY
     Route: 048
     Dates: start: 20101023
  5. SOLUPRED [Suspect]
     Dosage: 60 MG, 1X/DAY
     Route: 048
     Dates: start: 20101024
  6. LOVENOX [Suspect]
     Dosage: 4000 IU, 1X/DAY
     Route: 048
     Dates: start: 20101101, end: 20101107
  7. PROFENID [Suspect]
     Dosage: 100 MG, 3X/DAY
     Route: 048
     Dates: start: 20101123, end: 20101125
  8. MOPRAL [Suspect]
     Dosage: 20 MG, 2X/DAY
     Route: 042
     Dates: start: 20101023, end: 20101025
  9. TAXOL [Suspect]
     Dosage: 120 MG, 1X/DAY
     Route: 042
     Dates: start: 20100905
  10. AMLOR [Concomitant]
     Dosage: 5 MG, 1X/DAY
     Route: 048
     Dates: start: 20101107
  11. FUROSEMIDE [Concomitant]
     Dosage: 250MG/25ML, 1 DF, 2X/DAY
     Route: 042
     Dates: start: 20101109
  12. PARACETAMOL [Concomitant]
     Dosage: 10 MG/ML, 3X/DAY
     Route: 042
     Dates: start: 20101101, end: 20101106
  13. ACUPAN [Concomitant]
     Dosage: 6 DF, 1X/DAY
     Route: 042
     Dates: start: 20101106
  14. BRISTOPEN [Concomitant]
     Dosage: 2 G, 3X/DAY
     Dates: start: 20101101
  15. FENTANYL [Concomitant]
     Dosage: UNK
     Route: 002
     Dates: start: 20101101
  16. CIPROFLOXACIN HYDROCHLORIDE [Concomitant]
     Dosage: 500 MG, 2X/DAY
     Route: 048
     Dates: start: 20101101
  17. LASIX [Concomitant]
     Dosage: 20 MG/2ML, 1 DF, 3X/DAY
     Route: 042
     Dates: start: 20101105, end: 20101105
  18. PROFENID [Concomitant]
     Dosage: 100 MG, 1X/DAY
     Route: 042
     Dates: start: 20101105, end: 20101105

REACTIONS (2)
  - NEPHROTIC SYNDROME [None]
  - SEPSIS [None]
